FAERS Safety Report 10518217 (Version 1)
Quarter: 2014Q4

REPORT INFORMATION
  Report Type: Spontaneous
  Country: US (occurrence: None)
  Receive Date: 20141014
  Receipt Date: 20141014
  Transmission Date: 20150528
  Serious: Yes (Death, Hospitalization)
  Sender: FDA-Public Use
  Company Number: None

PATIENT
  Age: 80 Year
  Sex: Female

DRUGS (10)
  1. MULTIVITAMIN [Concomitant]
     Active Substance: VITAMINS
  2. POMALYST [Suspect]
     Active Substance: POMALIDOMIDE
     Indication: PLASMA CELL MYELOMA
     Dosage: 4 MG DAILY X 21D/28D ORALLY
     Route: 048
     Dates: start: 20130730, end: 20140703
  3. ALBUTEROL. [Concomitant]
     Active Substance: ALBUTEROL
  4. LEVOTHYROXINE [Concomitant]
     Active Substance: LEVOTHYROXINE
  5. POMALYST [Suspect]
     Active Substance: POMALIDOMIDE
     Indication: PLASMA CELL MYELOMA
     Dosage: 1, 2, 3MG DAILY X21D  ORALLY
     Route: 048
     Dates: start: 20130410, end: 20130729
  6. DEXAMETHASONE. [Concomitant]
     Active Substance: DEXAMETHASONE
  7. OMEPRAZOLE. [Concomitant]
     Active Substance: OMEPRAZOLE
  8. GABAPENTIN. [Concomitant]
     Active Substance: GABAPENTIN
  9. ASPIRIN. [Concomitant]
     Active Substance: ASPIRIN
  10. METHIPHENIDATE [Concomitant]

REACTIONS (8)
  - Peripheral swelling [None]
  - Feeling hot [None]
  - Sepsis [None]
  - Necrotising fasciitis [None]
  - Hypotension [None]
  - Febrile neutropenia [None]
  - Atrial fibrillation [None]
  - Erythema [None]

NARRATIVE: CASE EVENT DATE: 20140704
